FAERS Safety Report 17441282 (Version 11)
Quarter: 2021Q1

REPORT INFORMATION
  Report Type: Report from Study
  Country: KR (occurrence: KR)
  Receive Date: 20200220
  Receipt Date: 20210211
  Transmission Date: 20210419
  Serious: Yes (Death, Life-Threatening, Hospitalization)
  Sender: FDA-Public Use
  Company Number: KR-EISAI MEDICAL RESEARCH-EC-2020-070324

PATIENT
  Age: 76 Year
  Sex: Male
  Weight: 36.7 kg

DRUGS (8)
  1. MEGESTROL ACETATE. [Concomitant]
     Active Substance: MEGESTROL ACETATE
     Dates: start: 20191231
  2. TAPENTADOL [Concomitant]
     Active Substance: TAPENTADOL
     Dates: start: 20191222
  3. ERDOSTEINE [Concomitant]
     Active Substance: ERDOSTEINE
     Dates: start: 20191222
  4. PEMBROLIZUMAB. [Suspect]
     Active Substance: PEMBROLIZUMAB
     Indication: TRANSITIONAL CELL CARCINOMA
     Route: 041
     Dates: start: 20200123, end: 20200123
  5. HARMONILAN [Concomitant]
     Dates: start: 20191231
  6. LENVATINIB [Suspect]
     Active Substance: LENVATINIB
     Indication: TRANSITIONAL CELL CARCINOMA
     Route: 048
     Dates: start: 20200123, end: 20200130
  7. CETAMADOL [Concomitant]
     Dates: start: 20191222
  8. LACTULOSE. [Concomitant]
     Active Substance: LACTULOSE
     Dates: start: 20191222

REACTIONS (1)
  - Sepsis [Fatal]

NARRATIVE: CASE EVENT DATE: 20200206
